FAERS Safety Report 4567353-5 (Version None)
Quarter: 2005Q1

REPORT INFORMATION
  Report Type: 
  Country: None (occurrence: None)
  Receive Date: 20050127
  Receipt Date: 20050117
  Transmission Date: 20050727
  Serious: Yes (Death, Hospitalization)
  Sender: FDA-Public Use
  Company Number: 26010

PATIENT
  Age: 61 Year
  Sex: Male

DRUGS (2)
  1. MAXAIR [Suspect]
     Indication: ASTHMA
     Dosage: RESPIRATORY
     Route: 055
     Dates: start: 20040101
  2. ADVAIR DISKUS [Suspect]
     Indication: ASTHMA
     Dosage: (2 IN 1 DAY (S)), RESPIRATORY
     Route: 055
     Dates: start: 20041028

REACTIONS (5)
  - ASTHMA [None]
  - PHARMACEUTICAL PRODUCT COMPLAINT [None]
  - PNEUMONIA [None]
  - SELF-MEDICATION [None]
  - UNEVALUABLE EVENT [None]
